FAERS Safety Report 21659034 (Version 1)
Quarter: 2022Q4

REPORT INFORMATION
  Report Type: Spontaneous
  Country: US (occurrence: US)
  Receive Date: 20221129
  Receipt Date: 20221129
  Transmission Date: 20230113
  Serious: Yes (Disabling, Other)
  Sender: FDA-Public Use
  Company Number: US-HORIZON THERAPEUTICS-HZN-2022-009121

PATIENT

DRUGS (2)
  1. TEPEZZA [Suspect]
     Active Substance: TEPROTUMUMAB-TRBW
     Indication: Endocrine ophthalmopathy
     Dosage: FIRST INFUSION
     Route: 042
     Dates: start: 202006
  2. TEPEZZA [Suspect]
     Active Substance: TEPROTUMUMAB-TRBW
     Indication: Basedow^s disease
     Dosage: LAST INFUSION
     Route: 042
     Dates: start: 202011, end: 202011

REACTIONS (11)
  - Disability [Unknown]
  - Deafness [Unknown]
  - Pain [Unknown]
  - Anxiety [Unknown]
  - Discomfort [Unknown]
  - General physical health deterioration [Unknown]
  - Concomitant disease aggravated [Unknown]
  - Injury [Unknown]
  - Tinnitus [Unknown]
  - Product quality issue [Unknown]
  - Economic problem [Unknown]

NARRATIVE: CASE EVENT DATE: 20200101
